FAERS Safety Report 24136872 (Version 2)
Quarter: 2024Q4

REPORT INFORMATION
  Report Type: Report from Study
  Country: US (occurrence: US)
  Receive Date: 20240725
  Receipt Date: 20241209
  Transmission Date: 20250115
  Serious: Yes (Other)
  Sender: ARGENX BVBA
  Company Number: US-ARGENX-2024-ARGX-US005453

PATIENT

DRUGS (1)
  1. EFGARTIGIMOD ALFA-FCAB [Suspect]
     Active Substance: EFGARTIGIMOD ALFA-FCAB
     Indication: Myasthenia gravis
     Dosage: 1140 MG, 1/WEEK (400MG/20ML), FOR 4 WEEKS, REPEAT EVERY 12 WEEKS
     Route: 042
     Dates: start: 20240712

REACTIONS (12)
  - Immunodeficiency [Unknown]
  - Myasthenia gravis [Unknown]
  - Dysarthria [Unknown]
  - Muscle fatigue [Unknown]
  - Dyspnoea exertional [Unknown]
  - Loss of personal independence in daily activities [Unknown]
  - Eyelid ptosis [Unknown]
  - Muscular weakness [Recovering/Resolving]
  - Diplopia [Recovering/Resolving]
  - Fatigue [Unknown]
  - Fatigue [Unknown]
  - Infection [Unknown]

NARRATIVE: CASE EVENT DATE: 20240701
